FAERS Safety Report 8803692 (Version 2)
Quarter: 2012Q4

REPORT INFORMATION
  Report Type: 
  Country: US (occurrence: US)
  Receive Date: 20120924
  Receipt Date: 20121003
  Transmission Date: 20130627
  Serious: Yes (Hospitalization)
  Sender: FDA-Public Use
  Company Number: US-AMGEN-USASP2012059909

PATIENT
  Sex: Female
  Weight: 67.12 kg

DRUGS (9)
  1. PROLIA [Suspect]
     Indication: OSTEOPOROSIS
     Dosage: 60 mg, q6mo
     Route: 058
     Dates: start: 20111011
  2. AMLODIPINE BESYLATE [Concomitant]
     Indication: HYPERTENSION
     Dosage: 2.5 mg, qd
     Route: 048
  3. CELEBREX [Concomitant]
     Indication: ARTHRITIS
     Dosage: 200 mg, bid
     Route: 048
  4. OMEPRAZOLE [Concomitant]
     Indication: GASTROOESOPHAGEAL REFLUX DISEASE
     Dosage: 10 mg, qd
     Route: 048
  5. SIMVASTATIN [Concomitant]
     Indication: BLOOD CHOLESTEROL INCREASED
     Dosage: 10 mg, qd
     Route: 048
  6. VITAMIN D3 [Concomitant]
     Indication: OSTEOPOROSIS
     Dosage: 2000 IU, qd
     Route: 048
  7. CALCIUM [Concomitant]
  8. MIRALAX                            /00754501/ [Concomitant]
  9. IRON [Concomitant]

REACTIONS (4)
  - Urinary tract infection enterococcal [Recovered/Resolved]
  - Mental status changes [Recovered/Resolved]
  - Gastroenteritis viral [Recovered/Resolved]
  - Hyponatraemia [Recovered/Resolved]
